FAERS Safety Report 7200208-6 (Version None)
Quarter: 2010Q4

REPORT INFORMATION
  Report Type: 
  Country: None (occurrence: None)
  Receive Date: 20101228
  Receipt Date: 20101215
  Transmission Date: 20110411
  Serious: Yes (Other)
  Sender: FDA-Public Use
  Company Number: B0690547A

PATIENT
  Sex: Female

DRUGS (1)
  1. NIQUITIN [Suspect]
     Indication: PRODUCT USED FOR UNKNOWN INDICATION
     Route: 065
     Dates: start: 20101201

REACTIONS (1)
  - VISUAL ACUITY REDUCED [None]
